FAERS Safety Report 5350882-4 (Version None)
Quarter: 2007Q2

REPORT INFORMATION
  Report Type: 
  Country: None (occurrence: None)
  Receive Date: 20070608
  Receipt Date: 20070606
  Transmission Date: 20071010
  Serious: Yes (Other)
  Sender: FDA-Public Use
  Company Number: B0474056A

PATIENT
  Age: 57 Year
  Sex: Female

DRUGS (1)
  1. PAXIL [Suspect]
     Indication: OBSESSIVE-COMPULSIVE DISORDER
     Route: 048
     Dates: start: 20060701

REACTIONS (2)
  - ALTERED STATE OF CONSCIOUSNESS [None]
  - DRUG WITHDRAWAL SYNDROME [None]
